FAERS Safety Report 8321433 (Version 4)
Quarter: 2013Q2

REPORT INFORMATION
  Report Type: Spontaneous
  Country: FR (occurrence: FR)
  Receive Date: 20120104
  Receipt Date: 20130621
  Transmission Date: 20140414
  Serious: Yes (Death, Life-Threatening, Hospitalization)
  Sender: FDA-Public Use
  Company Number: FR-GLAXOSMITHKLINE-B0772146A

PATIENT
  Age: 80 Year
  Sex: Male

DRUGS (13)
  1. FLUARIX 2011-12 SEASON [Suspect]
     Indication: PROPHYLAXIS
     Route: 030
     Dates: start: 20111104, end: 20111104
  2. AVODART [Suspect]
     Indication: PRODUCT USED FOR UNKNOWN INDICATION
     Dosage: .5MG PER DAY
     Route: 048
     Dates: end: 20111122
  3. HEXAQUINE [Suspect]
     Indication: PRODUCT USED FOR UNKNOWN INDICATION
     Dosage: 3TAB PER DAY
     Route: 048
     Dates: start: 1998, end: 20111122
  4. NEXEN [Suspect]
     Indication: PRODUCT USED FOR UNKNOWN INDICATION
     Dosage: 100MG TWICE PER DAY
     Route: 048
     Dates: end: 20111122
  5. COTAREG [Suspect]
     Indication: PRODUCT USED FOR UNKNOWN INDICATION
     Route: 048
     Dates: end: 20111122
  6. BEFIZAL [Suspect]
     Indication: PRODUCT USED FOR UNKNOWN INDICATION
     Dosage: 400MG PER DAY
     Route: 048
     Dates: end: 20111122
  7. GLUCOPHAGE [Suspect]
     Indication: PRODUCT USED FOR UNKNOWN INDICATION
     Dosage: 500MG TWICE PER DAY
     Route: 048
     Dates: end: 20111122
  8. TRAMADOL [Suspect]
     Indication: PRODUCT USED FOR UNKNOWN INDICATION
     Dosage: 50MG THREE TIMES PER DAY
     Route: 048
     Dates: end: 20111122
  9. MEDIATENSYL [Suspect]
     Indication: PRODUCT USED FOR UNKNOWN INDICATION
     Dosage: 60MG TWICE PER DAY
     Route: 048
     Dates: end: 20111122
  10. KREDEX [Concomitant]
     Dosage: 12.5MG TWICE PER DAY
     Route: 065
  11. AMLOR [Concomitant]
     Dosage: 10MG PER DAY
     Route: 065
  12. ZOLPIDEM [Concomitant]
     Dosage: 10MG PER DAY
     Route: 065
  13. DAFALGAN [Concomitant]
     Route: 048

REACTIONS (3)
  - Autoimmune haemolytic anaemia [Fatal]
  - Renal failure [Unknown]
  - Cardiac failure [Unknown]
